FAERS Safety Report 5142298-0 (Version None)
Quarter: 2006Q4

REPORT INFORMATION
  Report Type: 
  Country: None (occurrence: None)
  Receive Date: 20061102
  Receipt Date: 20061025
  Transmission Date: 20070319
  Serious: Yes (Other)
  Sender: FDA-Public Use
  Company Number: 2006UW20784

PATIENT
  Age: 81 Year
  Sex: Female

DRUGS (6)
  1. SEROQUEL [Suspect]
     Route: 048
  2. NPH INSULIN [Concomitant]
  3. LORAZEPAM [Concomitant]
  4. METOCLOPRAMIDE [Concomitant]
  5. RAMIPRIL [Concomitant]
  6. VERAPAMIL [Concomitant]

REACTIONS (2)
  - HYPONATRAEMIA [None]
  - INTESTINAL OBSTRUCTION [None]
